FAERS Safety Report 16410253 (Version 1)
Quarter: 2019Q2

REPORT INFORMATION
  Report Type: Spontaneous
  Country: US (occurrence: US)
  Receive Date: 20190610
  Receipt Date: 20190610
  Transmission Date: 20190711
  Serious: No
  Sender: FDA-Public Use
  Company Number: US-TEVA-2019-US-1052844

PATIENT
  Sex: Male

DRUGS (1)
  1. METOPROLOL SUCCINATE ER ACTAVIS [Suspect]
     Active Substance: METOPROLOL SUCCINATE

REACTIONS (1)
  - Drug ineffective [Unknown]
